FAERS Safety Report 14482046 (Version 4)
Quarter: 2018Q1

REPORT INFORMATION
  Report Type: Report from Study
  Country: GR (occurrence: GR)
  Receive Date: 20180202
  Receipt Date: 20180223
  Transmission Date: 20180509
  Serious: Yes (Other)
  Sender: FDA-Public Use
  Company Number: GR-IPSEN BIOPHARMACEUTICALS, INC.-2018-01902

PATIENT
  Sex: Male

DRUGS (11)
  1. IRINOTECAN LIPOSOME [Suspect]
     Active Substance: IRINOTECAN
     Indication: OFF LABEL USE
  2. FOLINIC ACID [Suspect]
     Active Substance: LEUCOVORIN
     Indication: COLORECTAL CANCER METASTATIC
     Dosage: 200 MG/M2
     Dates: start: 20161122
  3. IRBESARTAN. [Concomitant]
     Active Substance: IRBESARTAN
  4. IRINOTECAN LIPOSOME [Suspect]
     Active Substance: IRINOTECAN
     Indication: COLORECTAL CANCER METASTATIC
     Dosage: 180 MG/M2
     Route: 065
     Dates: start: 20161122
  5. SIMVASTATIN. [Concomitant]
     Active Substance: SIMVASTATIN
  6. ERBITUX [Suspect]
     Active Substance: CETUXIMAB
     Indication: COLORECTAL CANCER METASTATIC
     Dosage: 500 MG/M2
     Dates: start: 20161122
  7. 5-FU [Suspect]
     Active Substance: FLUOROURACIL
     Dosage: 400 MG/M2
     Route: 040
     Dates: start: 20161122
  8. APIDRA [Concomitant]
     Active Substance: INSULIN GLULISINE
  9. 5-FU [Suspect]
     Active Substance: FLUOROURACIL
     Indication: COLORECTAL CANCER METASTATIC
     Dosage: 2400 MG/M2
     Route: 042
     Dates: start: 20161122
  10. TRESIBA [Concomitant]
     Active Substance: INSULIN DEGLUDEC
     Dates: start: 201503
  11. EZETROL [Concomitant]
     Active Substance: EZETIMIBE

REACTIONS (3)
  - Off label use [Unknown]
  - Overdose [Unknown]
  - Neutropenia [Not Recovered/Not Resolved]

NARRATIVE: CASE EVENT DATE: 20170329
